FAERS Safety Report 6311315-4 (Version None)
Quarter: 2009Q3

REPORT INFORMATION
  Report Type: 
  Country: None (occurrence: None)
  Receive Date: 20090817
  Receipt Date: 20090810
  Transmission Date: 20100115
  Serious: Yes (Hospitalization)
  Sender: FDA-Public Use
  Company Number: JP-BAYER-200912411BYL

PATIENT
  Age: 79 Year
  Sex: Male
  Weight: 54 kg

DRUGS (7)
  1. NEXAVAR [Suspect]
     Indication: HEPATIC CANCER STAGE III
     Dosage: TOTAL DAILY DOSE: 800 MG  UNIT DOSE: 200 MG
     Route: 048
     Dates: start: 20090626, end: 20090707
  2. DEPAS [Suspect]
     Indication: DRUG USE FOR UNKNOWN INDICATION
     Dosage: UNIT DOSE: 0.5 MG
     Route: 048
  3. GOODMIN [Suspect]
     Indication: DRUG USE FOR UNKNOWN INDICATION
     Dosage: UNIT DOSE: 0.25 MG
     Route: 048
  4. LASIX [Concomitant]
     Dosage: SINCE BEFORE ADMINISTRATION
     Route: 048
  5. HARNAL D [Concomitant]
     Dosage: SINCE BEFORE ADMINISTRATION
     Route: 048
  6. ADALAT CC [Concomitant]
     Dosage: SINCE BEFORE ADMINISTRATION
     Route: 048
  7. PROMAC [Concomitant]
     Dosage: SINCE BEFORE ADMINISTRATION
     Route: 048

REACTIONS (3)
  - HEPATIC ENCEPHALOPATHY [None]
  - LIVER DISORDER [None]
  - URTICARIA [None]
